FAERS Safety Report 8544469-X (Version None)
Quarter: 2012Q3

REPORT INFORMATION
  Report Type: 
  Country: None (occurrence: None)
  Receive Date: 20120719
  Receipt Date: 20120719
  Transmission Date: 20120928
  Serious: No
  Sender: FDA-Public Use
  Company Number: None

PATIENT
  Sex: Female

DRUGS (1)
  1. TYSABRI [Suspect]
     Indication: MULTIPLE SCLEROSIS
     Dosage: 300MG Q 4 WEEKS IV
     Route: 042
     Dates: start: 20120703

REACTIONS (2)
  - LOSS OF CONSCIOUSNESS [None]
  - DIZZINESS [None]
